FAERS Safety Report 5742671-3 (Version None)
Quarter: 2008Q2

REPORT INFORMATION
  Report Type: 
  Country: None (occurrence: None)
  Receive Date: 20080519
  Receipt Date: 20080512
  Transmission Date: 20081010
  Serious: Yes (Other)
  Sender: FDA-Public Use
  Company Number: US-AVENTIS-200718370US

PATIENT
  Sex: Female

DRUGS (2)
  1. KETEK [Suspect]
     Dosage: DOSE: ^400 MG INCREMENTS^
     Route: 048
     Dates: start: 20060101, end: 20060201
  2. KETEK [Suspect]
     Dosage: DOSE: ^400 MG INCREMENTS^
     Route: 048
     Dates: start: 20060101, end: 20060201

REACTIONS (9)
  - ACARODERMATITIS [None]
  - ACTINIC KERATOSIS [None]
  - ECZEMA [None]
  - IMPETIGO [None]
  - NEURODERMATITIS [None]
  - PRURITUS [None]
  - RASH [None]
  - SKIN BACTERIAL INFECTION [None]
  - SQUAMOUS CELL CARCINOMA [None]
